FAERS Safety Report 17369463 (Version 1)
Quarter: 2020Q1

REPORT INFORMATION
  Report Type: Spontaneous
  Country: NO (occurrence: NO)
  Receive Date: 20200204
  Receipt Date: 20200204
  Transmission Date: 20200409
  Serious: Yes (Hospitalization)
  Sender: FDA-Public Use
  Company Number: NO-009507513-2001NOR010132

PATIENT
  Age: 53 Year
  Sex: Female

DRUGS (6)
  1. MELATONIN [Concomitant]
     Active Substance: MELATONIN
     Dosage: 9 MILLIGRAM, QD
     Route: 048
  2. EZETROL [Suspect]
     Active Substance: EZETIMIBE
     Indication: LOW DENSITY LIPOPROTEIN INCREASED
     Dosage: 10 MILLIGRAM, QD
     Route: 048
     Dates: start: 20191211, end: 20191218
  3. METOPROLOL. [Concomitant]
     Active Substance: METOPROLOL
     Dosage: 150 MILLIGRAM, QD
     Route: 048
  4. BRILIQUE [Concomitant]
     Active Substance: TICAGRELOR
     Dosage: 180 MILLIGRAM, QD
     Route: 048
  5. SOMAC [Concomitant]
     Active Substance: PANTOPRAZOLE SODIUM
     Dosage: 40 MILLIGRAM, QD
     Route: 048
  6. SIMVASTATIN. [Concomitant]
     Active Substance: SIMVASTATIN
     Dosage: 40 MILLIGRAM, QD
     Route: 048

REACTIONS (1)
  - Feeling of body temperature change [Recovering/Resolving]

NARRATIVE: CASE EVENT DATE: 20191215
